FAERS Safety Report 8328803-1 (Version None)
Quarter: 2012Q2

REPORT INFORMATION
  Report Type: 
  Country: None (occurrence: None)
  Receive Date: 20120502
  Receipt Date: 20100901
  Transmission Date: 20120825
  Serious: No
  Sender: FDA-Public Use
  Company Number: US-TEVA-2010004660

PATIENT
  Sex: Female
  Weight: 70.37 kg

DRUGS (5)
  1. MIRTAZAPINE [Concomitant]
     Dates: start: 20100801
  2. MIRALAX [Concomitant]
     Dates: start: 20100601
  3. EFFEXOR [Concomitant]
     Indication: DEPRESSION
     Dates: start: 20070101
  4. OMEPRAZOLE [Concomitant]
     Indication: GASTROOESOPHAGEAL REFLUX DISEASE
     Dates: start: 20100701
  5. NUVIGIL [Suspect]
     Indication: SLEEP APNOEA SYNDROME
     Dosage: 150 MILLIGRAM;
     Route: 048
     Dates: start: 20100801

REACTIONS (2)
  - MOUTH ULCERATION [None]
  - DYSPNOEA [None]
